FAERS Safety Report 24343473 (Version 3)
Quarter: 2025Q1

REPORT INFORMATION
  Report Type: Spontaneous
  Country: CA (occurrence: CA)
  Receive Date: 20240920
  Receipt Date: 20250312
  Transmission Date: 20250408
  Serious: Yes (Hospitalization, Other)
  Sender: Kenvue
  Company Number: CA-JNJFOC-20240939751

PATIENT

DRUGS (10)
  1. IBUPROFEN [Suspect]
     Active Substance: IBUPROFEN
     Indication: Product used for unknown indication
     Route: 065
  2. IBUPROFEN [Suspect]
     Active Substance: IBUPROFEN
     Indication: Product used for unknown indication
     Route: 065
  3. ASPIRIN [Suspect]
     Active Substance: ASPIRIN
     Indication: Product used for unknown indication
     Dosage: 81 MILLIGRAM, ONCE A DAY (DAILY)
     Route: 065
  4. RIVAROXABAN [Suspect]
     Active Substance: RIVAROXABAN
     Indication: Product used for unknown indication
     Dosage: 20 MILLIGRAM, ONCE A DAY (DAILY)
     Route: 048
  5. AMLODIPINE [Concomitant]
     Active Substance: AMLODIPINE BESYLATE
     Indication: Product used for unknown indication
     Dosage: 5 MILLIGRAM, ONCE A DAY (DAILY)
     Route: 048
  6. BIMATOPROST [Concomitant]
     Active Substance: BIMATOPROST
     Indication: Product used for unknown indication
     Route: 065
  7. BRIMONIDINE [Concomitant]
     Active Substance: BRIMONIDINE TARTRATE
     Indication: Product used for unknown indication
     Route: 065
  8. HYDROCHLOROTHIAZIDE [Concomitant]
     Active Substance: HYDROCHLOROTHIAZIDE
     Indication: Product used for unknown indication
     Dosage: 12.5 MILLIGRAM, ONCE A DAY (DAILY)
     Route: 048
  9. ROSUVASTATIN [Concomitant]
     Active Substance: ROSUVASTATIN
     Indication: Product used for unknown indication
     Route: 048
  10. TIMOLOL [Concomitant]
     Active Substance: TIMOLOL
     Indication: Product used for unknown indication
     Route: 065

REACTIONS (7)
  - Dyspnoea [Not Recovered/Not Resolved]
  - Oedema [Not Recovered/Not Resolved]
  - Oedema peripheral [Not Recovered/Not Resolved]
  - Pain in extremity [Not Recovered/Not Resolved]
  - Haemoglobin abnormal [Not Recovered/Not Resolved]
  - Haematemesis [Not Recovered/Not Resolved]
  - Melaena [Not Recovered/Not Resolved]

NARRATIVE: CASE EVENT DATE: 20231221
